FAERS Safety Report 13393563 (Version 1)
Quarter: 2017Q1

REPORT INFORMATION
  Report Type: Spontaneous
  Country: US (occurrence: US)
  Receive Date: 20170331
  Receipt Date: 20170331
  Transmission Date: 20170429
  Serious: Yes (Hospitalization, Other)
  Sender: FDA-Public Use
  Company Number: US-MYLANLABS-2017M1019755

PATIENT

DRUGS (1)
  1. DIGOXIN. [Suspect]
     Active Substance: DIGOXIN
     Indication: PRODUCT USED FOR UNKNOWN INDICATION
     Dosage: 375MICROG
     Route: 037

REACTIONS (6)
  - Spinal cord ischaemia [Recovering/Resolving]
  - Demyelination [Recovering/Resolving]
  - Myelitis [Recovering/Resolving]
  - Loss of consciousness [Recovered/Resolved]
  - Maternal exposure during delivery [Unknown]
  - Medication error [Recovering/Resolving]
